FAERS Safety Report 4557261-8 (Version None)
Quarter: 2005Q1

REPORT INFORMATION
  Report Type: 
  Country: None (occurrence: None)
  Receive Date: 20050118
  Receipt Date: 20041118
  Transmission Date: 20050727
  Serious: Yes (Death, Hospitalization, Disabling)
  Sender: FDA-Public Use
  Company Number: 2004098193

PATIENT
  Age: 71 Year
  Sex: Female

DRUGS (3)
  1. DOXORUBICIN HCL [Suspect]
     Indication: LYMPHOMA
     Dosage: 10 MG (10 MG, QD), INTRAVENOUS
     Route: 042
     Dates: start: 19970601, end: 20030401
  2. PIRARUBICIN (PIRARUBICIN) [Suspect]
     Indication: LYMPHOMA
     Dosage: 40 MG, (40 MG, QD), INTRAVENOUS
     Route: 042
     Dates: start: 19960801, end: 19970301
  3. CYCLOPHOSPHAMIDE [Suspect]
     Indication: LYMPHOMA
     Dosage: 1200 MG (1200 MG), INTRAVENOUS
     Route: 042
     Dates: start: 19960801, end: 20030401

REACTIONS (7)
  - CARDIAC FAILURE [None]
  - CARDIOTOXICITY [None]
  - CEREBRAL INFARCTION [None]
  - CONDITION AGGRAVATED [None]
  - EOSINOPHILIA [None]
  - INTRACARDIAC THROMBUS [None]
  - PNEUMONIA [None]
